FAERS Safety Report 11803391 (Version 1)
Quarter: 2015Q4

REPORT INFORMATION
  Report Type: Spontaneous
  Country: US (occurrence: US)
  Receive Date: 20151204
  Receipt Date: 20151204
  Transmission Date: 20160305
  Serious: Yes (Other)
  Sender: FDA-Public Use
  Company Number: US-PFIZER INC-2015408608

PATIENT
  Age: 56 Year
  Sex: Female
  Weight: 127 kg

DRUGS (9)
  1. LYRICA [Suspect]
     Active Substance: PREGABALIN
     Indication: NEURALGIA
     Dosage: 200 MG, 3X/DAY
     Dates: start: 2008
  2. TYLENOL [Concomitant]
     Active Substance: ACETAMINOPHEN
     Indication: PAIN
  3. EFFEXOR [Concomitant]
     Active Substance: VENLAFAXINE HYDROCHLORIDE
     Indication: ANXIETY
     Dosage: 150 MG, 1X/DAY
  4. ENABLEX [Concomitant]
     Active Substance: DARIFENACIN\DARIFENACIN HYDROBROMIDE
     Indication: URINARY INCONTINENCE
     Dosage: 15 MG, 1X/DAY
  5. BACLOFEN. [Concomitant]
     Active Substance: BACLOFEN
     Indication: MUSCLE SPASMS
     Dosage: 20 MG, 2-3 TIMES A DAY
  6. BACLOFEN. [Concomitant]
     Active Substance: BACLOFEN
     Indication: MUSCLE SPASMS
  7. ESTRADIOL. [Concomitant]
     Active Substance: ESTRADIOL
     Indication: HORMONE LEVEL ABNORMAL
     Dosage: 1 PACK FOR A WEEK 0.01 MG
  8. LYRICA [Suspect]
     Active Substance: PREGABALIN
     Indication: TREMOR
  9. DIAZEPAM. [Concomitant]
     Active Substance: DIAZEPAM
     Indication: ANXIETY
     Dosage: 5 MG, 3X/DAY

REACTIONS (8)
  - Exostosis [Unknown]
  - Intervertebral disc protrusion [Unknown]
  - Back pain [Unknown]
  - Condition aggravated [Unknown]
  - Spinal cord disorder [Unknown]
  - Body height decreased [Unknown]
  - Tremor [Unknown]
  - Pain in extremity [Unknown]
